FAERS Safety Report 5417929-8 (Version None)
Quarter: 2007Q3

REPORT INFORMATION
  Report Type: 
  Country: None (occurrence: None)
  Receive Date: 20070815
  Receipt Date: 20070809
  Transmission Date: 20080115
  Serious: Yes (Death)
  Sender: FDA-Public Use
  Company Number: 2007SP012991

PATIENT
  Age: 64 Year
  Sex: Male
  Weight: 68 kg

DRUGS (5)
  1. TEMOZOLOMIDE [Suspect]
     Indication: GLIOBLASTOMA
     Dosage: 140 MG; QD; PO
     Route: 048
     Dates: start: 20070419, end: 20070516
  2. BACTRIM DS [Concomitant]
  3. ZOFRAN [Concomitant]
  4. KEPPRA [Concomitant]
  5. SOLU-MEDROL [Concomitant]

REACTIONS (2)
  - PANCYTOPENIA [None]
  - SEPTIC SHOCK [None]
